FAERS Safety Report 7896423-9 (Version None)
Quarter: 2011Q4

REPORT INFORMATION
  Report Type: 
  Country: None (occurrence: None)
  Receive Date: 20111102
  Receipt Date: 20111102
  Transmission Date: 20120403
  Serious: Yes (Disabling)
  Sender: FDA-Public Use
  Company Number: 1022556-2011-00027

PATIENT
  Age: 80 Year
  Sex: Male

DRUGS (1)
  1. ICY HOT POWER GEL 1.75 OZ [Suspect]
     Indication: MYALGIA
     Dosage: TOPICAL ONCE
     Route: 061

REACTIONS (3)
  - SCAR [None]
  - APPLICATION SITE BURN [None]
  - APPLICATION SITE ERYTHEMA [None]
